FAERS Safety Report 15326299 (Version 1)
Quarter: 2018Q3

REPORT INFORMATION
  Report Type: Spontaneous
  Country: US (occurrence: US)
  Receive Date: 20180828
  Receipt Date: 20180828
  Transmission Date: 20181010
  Serious: No
  Sender: FDA-Public Use
  Company Number: US-MYLANLABS-2018M1062186

PATIENT
  Sex: Female

DRUGS (2)
  1. ZOLPIDEM TARTRATE TABLETS, USP [Suspect]
     Active Substance: ZOLPIDEM TARTRATE
     Indication: PRODUCT USED FOR UNKNOWN INDICATION
     Dosage: UNK
  2. ZOLPIDEM TARTRATE TABLETS, USP [Suspect]
     Active Substance: ZOLPIDEM TARTRATE
     Dosage: 2 DF, UNK

REACTIONS (1)
  - Drug ineffective [Not Recovered/Not Resolved]
